FAERS Safety Report 4752237-X (Version None)
Quarter: 2005Q3

REPORT INFORMATION
  Report Type: 
  Country: None (occurrence: None)
  Receive Date: 20050825
  Receipt Date: 20050315
  Transmission Date: 20060218
  Serious: No
  Sender: FDA-Public Use
  Company Number: US-GLAXOSMITHKLINE-A0549849A

PATIENT
  Age: 43 Year
  Sex: Female
  Weight: 68.2 kg

DRUGS (8)
  1. LOTRONEX [Suspect]
     Indication: IRRITABLE BOWEL SYNDROME
     Dosage: .5MG TWICE PER DAY
     Route: 048
     Dates: start: 20050310, end: 20050312
  2. BUSPAR [Concomitant]
     Dosage: 30MG PER DAY
     Route: 048
     Dates: start: 20050101
  3. LACTAID [Concomitant]
     Route: 048
  4. CENTRUM [Concomitant]
     Dosage: 1TAB PER DAY
     Route: 048
  5. CALTRATE [Concomitant]
     Dosage: 600MG TWICE PER DAY
     Route: 048
     Dates: start: 20040101
  6. HERBAL SUPPLEMENT [Concomitant]
  7. ASCORBIC ACID [Concomitant]
     Route: 048
     Dates: start: 20040101
  8. PROBIOTIC [Concomitant]

REACTIONS (1)
  - CONSTIPATION [None]
